FAERS Safety Report 17441034 (Version 4)
Quarter: 2020Q2

REPORT INFORMATION
  Report Type: Report from Study
  Country: CA (occurrence: CA)
  Receive Date: 20200220
  Receipt Date: 20200409
  Transmission Date: 20200713
  Serious: Yes (Other)
  Sender: FDA-Public Use
  Company Number: CA-JNJFOC-20191024100

PATIENT
  Age: 58 Year
  Sex: Male
  Weight: 97.1 kg

DRUGS (2)
  1. SIMPONI [Suspect]
     Active Substance: GOLIMUMAB
     Indication: COLITIS ULCERATIVE
     Route: 058
  2. CICLESONIDE [Suspect]
     Active Substance: CICLESONIDE
     Indication: CHRONIC OBSTRUCTIVE PULMONARY DISEASE
     Route: 065
     Dates: start: 202003

REACTIONS (6)
  - Neoplasm malignant [Recovered/Resolved]
  - Influenza [Recovered/Resolved]
  - Urinary retention [Recovered/Resolved]
  - Cough [Recovering/Resolving]
  - Chronic obstructive pulmonary disease [Not Recovered/Not Resolved]
  - Chondropathy [Unknown]

NARRATIVE: CASE EVENT DATE: 20190923
